FAERS Safety Report 20841312 (Version 2)
Quarter: 2022Q4

REPORT INFORMATION
  Report Type: Report from Study
  Country: IL (occurrence: IL)
  Receive Date: 20220517
  Receipt Date: 20221207
  Transmission Date: 20230112
  Serious: Yes (Other)
  Sender: FDA-Public Use
  Company Number: IL-ABBVIE-22K-082-4378750-00

PATIENT
  Sex: Male

DRUGS (2)
  1. HUMIRA [Suspect]
     Active Substance: ADALIMUMAB
     Indication: Crohn^s disease
     Dosage: FORM STRENGTH: 40MG
     Route: 058
     Dates: start: 20220209, end: 2022
  2. HUMIRA [Suspect]
     Active Substance: ADALIMUMAB
     Dosage: FORM STRENGTH: 40MG
     Route: 058
     Dates: start: 20221130

REACTIONS (5)
  - Blood urine present [Unknown]
  - Renal cancer [Unknown]
  - Benign renal neoplasm [Unknown]
  - General physical health deterioration [Unknown]
  - Purulent discharge [Unknown]

NARRATIVE: CASE EVENT DATE: 20220101
